FAERS Safety Report 15112560 (Version 2)
Quarter: 2018Q3

REPORT INFORMATION
  Report Type: Report from Study
  Country: CA (occurrence: CA)
  Receive Date: 20180705
  Receipt Date: 20180707
  Transmission Date: 20181010
  Serious: Yes (Other)
  Sender: FDA-Public Use
  Company Number: CA-HLSUS-2018-CA-001034

PATIENT
  Age: 36 Year
  Sex: Male

DRUGS (4)
  1. PERPHENAZINE. [Concomitant]
     Active Substance: PERPHENAZINE
  2. CLOZARIL [Suspect]
     Active Substance: CLOZAPINE
     Indication: SCHIZOPHRENIA
     Route: 048
     Dates: start: 20100412
  3. RESPERIDONE [Concomitant]
     Active Substance: RISPERIDONE
  4. OLANZAPINE. [Concomitant]
     Active Substance: OLANZAPINE

REACTIONS (14)
  - VIth nerve paralysis [Unknown]
  - Drooling [Unknown]
  - Carotid artery stenosis [Unknown]
  - QRS axis abnormal [Unknown]
  - Constipation [Unknown]
  - Coronary artery disease [Unknown]
  - Dyslipidaemia [Unknown]
  - Hallucination, auditory [Unknown]
  - Diplopia [Unknown]
  - Pulmonary embolism [Unknown]
  - Somnolence [Unknown]
  - Strabismus [Unknown]
  - Sedation [Unknown]
  - Diplopia [Unknown]

NARRATIVE: CASE EVENT DATE: 2013
